FAERS Safety Report 16688906 (Version 1)
Quarter: 2019Q4

REPORT INFORMATION
  Report Type: Spontaneous
  Country: PR (occurrence: PR)
  Receive Date: 20190809
  Receipt Date: 20190809
  Transmission Date: 20200122
  Serious: No
  Sender: FDA-Public Use
  Company Number: None

PATIENT
  Age: 88 Year
  Sex: Female
  Weight: 42.75 kg

DRUGS (1)
  1. IMIPENEM AND CILASTATIN [Suspect]
     Active Substance: CILASTATIN SODIUM\IMIPENEM
     Indication: URINARY TRACT INFECTION
     Route: 041
     Dates: start: 20190708, end: 20190709

REACTIONS (4)
  - Nausea [None]
  - Tremor [None]
  - Chills [None]
  - Therapy cessation [None]

NARRATIVE: CASE EVENT DATE: 20190707
